FAERS Safety Report 8415985-6 (Version None)
Quarter: 2012Q2

REPORT INFORMATION
  Report Type: 
  Country: None (occurrence: None)
  Receive Date: 20120606
  Receipt Date: 20111123
  Transmission Date: 20120825
  Serious: No
  Sender: FDA-Public Use
  Company Number: US-PFIZER INC-2011292149

PATIENT
  Sex: Female

DRUGS (3)
  1. IBUPROFEN [Suspect]
     Indication: PAIN
     Dosage: UNK
     Dates: start: 20110101
  2. MOTRIN [Suspect]
     Indication: PAIN
     Dosage: UNK
     Dates: start: 20110101
  3. ACETYLSALICYLIC ACID SRT [Suspect]
     Indication: PAIN
     Dosage: UNK
     Dates: start: 20110101

REACTIONS (1)
  - DRUG INEFFECTIVE [None]
